FAERS Safety Report 8909739 (Version 2)
Quarter: 2013Q1

REPORT INFORMATION
  Report Type: Spontaneous
  Country: VE (occurrence: VE)
  Receive Date: 20121115
  Receipt Date: 20130211
  Transmission Date: 20140127
  Serious: Yes (Life-Threatening, Other)
  Sender: FDA-Public Use
  Company Number: VE-ELI_LILLY_AND_COMPANY-VE201201009262

PATIENT
  Age: 29 Year
  Sex: Female

DRUGS (8)
  1. HUMALOG 25% LISPRO, 75% NPL [Suspect]
     Indication: GESTATIONAL DIABETES
     Dosage: 8 U, EACH MORNING
     Dates: start: 20120126
  2. HUMALOG 25% LISPRO, 75% NPL [Suspect]
     Dosage: 5 U, EACH EVENING
     Dates: start: 20120126
  3. GLUCOPHAGE [Concomitant]
     Indication: DIABETES MELLITUS
     Dosage: 850 MG, UNKNOWN
  4. MAGNESIUM [Concomitant]
     Dosage: 500 MG, UNKNOWN
  5. ADALAT [Concomitant]
     Indication: HYPERTENSION
     Dosage: 30 MG, UNKNOWN
  6. FOLIC ACID [Concomitant]
     Dosage: UNK
  7. VITAMINS [Concomitant]
     Indication: PREGNANCY
     Dosage: UNK
  8. ALDOMET [Concomitant]

REACTIONS (3)
  - Pre-eclampsia [Recovered/Resolved]
  - Oedema peripheral [Recovered/Resolved]
  - Exposure during pregnancy [Recovered/Resolved]
